FAERS Safety Report 12738181 (Version 4)
Quarter: 2016Q4

REPORT INFORMATION
  Report Type: Spontaneous
  Country: DE (occurrence: DE)
  Receive Date: 20160913
  Receipt Date: 20161216
  Transmission Date: 20170207
  Serious: Yes (Hospitalization, Other)
  Sender: FDA-Public Use
  Company Number: DE-JNJFOC-20160909015

PATIENT
  Age: 64 Year
  Sex: Female

DRUGS (2)
  1. HALDOL [Suspect]
     Active Substance: HALOPERIDOL
     Indication: PRODUCT USED FOR UNKNOWN INDICATION
     Route: 065
  2. CORNEREGEL [Concomitant]
     Active Substance: DEXPANTHENOL
     Route: 065
     Dates: start: 20120724, end: 2013

REACTIONS (3)
  - Angle closure glaucoma [Recovering/Resolving]
  - Blindness [Recovering/Resolving]
  - Psychotic disorder [Recovering/Resolving]

NARRATIVE: CASE EVENT DATE: 20100111
